FAERS Safety Report 7599210-4 (Version None)
Quarter: 2011Q3

REPORT INFORMATION
  Report Type: 
  Country: None (occurrence: None)
  Receive Date: 20110711
  Receipt Date: 20110623
  Transmission Date: 20111222
  Serious: Yes (Other)
  Sender: FDA-Public Use
  Company Number: US-BAYER-2011-022085

PATIENT
  Age: 30 Year
  Sex: Female
  Weight: 72.562 kg

DRUGS (2)
  1. YASMIN [Suspect]
     Indication: ORAL CONTRACEPTION
     Dosage: UNK
     Route: 048
  2. DROSPIRENONE AND ETHINYL ESTRADIOL [Suspect]
     Indication: ORAL CONTRACEPTION
     Dosage: UNK
     Route: 048
     Dates: start: 20080801, end: 20091001

REACTIONS (12)
  - CHOLELITHIASIS [None]
  - ABDOMINAL PAIN UPPER [None]
  - INJURY [None]
  - DEPRESSION [None]
  - EMOTIONAL DISTRESS [None]
  - NERVOUSNESS [None]
  - CHOLECYSTITIS CHRONIC [None]
  - CHEST PAIN [None]
  - BACK PAIN [None]
  - CHOLECYSTITIS [None]
  - DYSPNOEA [None]
  - FEAR OF DEATH [None]
